FAERS Safety Report 6274124-0 (Version None)
Quarter: 2009Q3

REPORT INFORMATION
  Report Type: 
  Country: None (occurrence: None)
  Receive Date: 20090720
  Receipt Date: 20090715
  Transmission Date: 20100115
  Serious: Yes (Life-Threatening, Hospitalization, Other)
  Sender: FDA-Public Use
  Company Number: PHHY2009IE25094

PATIENT
  Sex: Female

DRUGS (12)
  1. CLOZARIL [Suspect]
     Indication: SCHIZOPHRENIA
     Dosage: UNK
     Dates: start: 20041026, end: 20090622
  2. SOLIAN [Concomitant]
  3. LEVOTHYROXINE SODIUM [Concomitant]
  4. EPILIMAND [Concomitant]
  5. MIDAZOLAM HCL [Concomitant]
  6. PROPOFOL [Concomitant]
  7. MORPHINE [Concomitant]
  8. TINZAPARIN SODIUM [Concomitant]
  9. COMBIVENT [Concomitant]
  10. PULMICORT-100 [Concomitant]
  11. FLAGYL [Concomitant]
  12. TAZOCIN [Concomitant]

REACTIONS (10)
  - CELLULITIS [None]
  - DEPRESSED LEVEL OF CONSCIOUSNESS [None]
  - FATIGUE [None]
  - FULL BLOOD COUNT DECREASED [None]
  - INJECTION SITE INFECTION [None]
  - OEDEMA PERIPHERAL [None]
  - PULMONARY CONGESTION [None]
  - RESPIRATORY FAILURE [None]
  - SOMNOLENCE [None]
  - THERAPY CESSATION [None]
